FAERS Safety Report 12198540 (Version 1)
Quarter: 2016Q1

REPORT INFORMATION
  Report Type: Spontaneous
  Country: US (occurrence: US)
  Receive Date: 20160322
  Receipt Date: 20160322
  Transmission Date: 20160526
  Serious: No
  Sender: FDA-Public Use
  Company Number: US-JNJFOC-20160311408

PATIENT
  Age: 48 Year
  Sex: Female

DRUGS (8)
  1. METOPROLOL TARTRATE. [Concomitant]
     Active Substance: METOPROLOL TARTRATE
     Indication: HYPERTENSION
     Route: 048
     Dates: start: 20150317
  2. RISPERDAL CONSTA [Suspect]
     Active Substance: RISPERIDONE
     Indication: PSYCHOTIC DISORDER
     Route: 030
  3. OLANZAPINE. [Concomitant]
     Active Substance: OLANZAPINE
     Indication: PSYCHOTIC DISORDER
     Dosage: AT BEDTIME
     Route: 048
     Dates: start: 20150317
  4. TRAZODONE [Concomitant]
     Active Substance: TRAZODONE HYDROCHLORIDE
     Indication: SLEEP DISORDER
     Dosage: AS NEEDED AT BEDTIME
     Route: 048
     Dates: start: 20150317
  5. ACETAMINOPHEN. [Concomitant]
     Active Substance: ACETAMINOPHEN
     Indication: PYREXIA
     Dosage: FOUR TIMES DAILY AS NEEDED.
     Route: 048
     Dates: start: 20150319
  6. METOPROLOL TARTRATE. [Concomitant]
     Active Substance: METOPROLOL TARTRATE
     Indication: TACHYCARDIA
     Route: 048
     Dates: start: 20150317
  7. LOPERAMIDE [Concomitant]
     Active Substance: LOPERAMIDE
     Indication: DIARRHOEA
     Dosage: FOUR TIMES DAILY AS NEEDED.
     Route: 048
     Dates: start: 20150319
  8. ACETAMINOPHEN. [Concomitant]
     Active Substance: ACETAMINOPHEN
     Indication: HEADACHE
     Dosage: FOUR TIMES DAILY AS NEEDED.
     Route: 048
     Dates: start: 20150319

REACTIONS (3)
  - Device breakage [Unknown]
  - Drug dose omission [Unknown]
  - Device leakage [Unknown]

NARRATIVE: CASE EVENT DATE: 20160309
